FAERS Safety Report 4544261-7 (Version None)
Quarter: 2004Q4

REPORT INFORMATION
  Report Type: 
  Country: None (occurrence: None)
  Receive Date: 20041230
  Receipt Date: 20041220
  Transmission Date: 20050328
  Serious: Yes (Hospitalization)
  Sender: FDA-Public Use
  Company Number: 2004115242

PATIENT
  Age: 66 Year
  Sex: Female

DRUGS (5)
  1. ATORVASTATIN CALCIUM [Suspect]
     Indication: HYPERCHOLESTEROLAEMIA
     Dosage: ORAL
     Route: 048
     Dates: start: 20030601
  2. FENOFIBRATE [Suspect]
     Indication: HYPERCHOLESTEROLAEMIA
     Dosage: ORAL
     Route: 048
     Dates: start: 20030601, end: 20030615
  3. PIPEMIDIC ACID (PIPEMIDIC ACID) [Concomitant]
     Indication: URINARY TRACT INFECTION
     Dosage: 400 MG, ORAL
     Route: 048
     Dates: start: 20030601, end: 20030615
  4. IRBESARTAN [Suspect]
     Indication: ESSENTIAL HYPERTENSION
     Dosage: ORAL
     Route: 048
     Dates: start: 20030601
  5. PIRETANIDE (PIRETANIDE) [Suspect]
     Indication: ESSENTIAL HYPERTENSION
     Dosage: ORAL
     Route: 048
     Dates: start: 20030601, end: 20030615

REACTIONS (3)
  - RENAL FAILURE [None]
  - RENAL TUBULAR DISORDER [None]
  - RENAL TUBULAR NECROSIS [None]
